FAERS Safety Report 8056370-9 (Version None)
Quarter: 2012Q1

REPORT INFORMATION
  Report Type: 
  Country: None (occurrence: None)
  Receive Date: 20120119
  Receipt Date: 20120116
  Transmission Date: 20120608
  Serious: Yes (Other)
  Sender: FDA-Public Use
  Company Number: US-PFIZER INC-2012012455

PATIENT
  Sex: Female
  Weight: 56.689 kg

DRUGS (11)
  1. TRICOR [Concomitant]
     Indication: BLOOD TRIGLYCERIDES INCREASED
     Dosage: UNK
     Dates: start: 20070101
  2. XANAX [Suspect]
     Indication: ANXIETY DISORDER
     Dosage: 0.5 MG, 2X/DAY
     Route: 048
  3. SIMVASTATIN [Concomitant]
     Indication: BLOOD CHOLESTEROL INCREASED
     Dosage: UNK
     Dates: start: 20070101
  4. LYRICA [Suspect]
     Indication: FIBROMYALGIA
     Dosage: 75 MG, 3X/DAY
     Route: 048
     Dates: start: 20060101
  5. LYRICA [Suspect]
     Indication: INTERVERTEBRAL DISC DISORDER
  6. LYRICA [Suspect]
     Indication: RHEUMATOID ARTHRITIS
  7. NORCO [Concomitant]
     Indication: PAIN
     Dosage: UNK
  8. ACETAMINOPHEN [Concomitant]
     Indication: PAIN
     Dosage: UNK
  9. LYRICA [Suspect]
     Indication: OSTEOARTHRITIS
     Dosage: 150 MG, 3X/DAY
     Route: 048
     Dates: end: 20110801
  10. METHADONE [Concomitant]
     Indication: PAIN
     Dosage: 10 MG, 3X/DAY
  11. LYRICA [Suspect]
     Indication: BONE DISORDER

REACTIONS (1)
  - CHOLELITHIASIS [None]
